FAERS Safety Report 12283593 (Version 3)
Quarter: 2016Q2

REPORT INFORMATION
  Report Type: Spontaneous
  Country: BR (occurrence: BR)
  Receive Date: 20160419
  Receipt Date: 20160516
  Transmission Date: 20160815
  Serious: Yes (Other)
  Sender: FDA-Public Use
  Company Number: BR-PFIZER INC-2011190347

PATIENT
  Age: 57 Year
  Sex: Female
  Weight: 98 kg

DRUGS (11)
  1. FRONTAL [Suspect]
     Active Substance: ALPRAZOLAM
     Indication: DEPRESSION
     Dosage: 1 MG, ONE TABLET ONCE DAILY
     Route: 048
     Dates: start: 20110816, end: 2015
  2. RIVOTRIL [Concomitant]
     Active Substance: CLONAZEPAM
     Indication: TENSION
     Dosage: UNK
  3. ALPRAZOLAM. [Suspect]
     Active Substance: ALPRAZOLAM
     Indication: SLEEP DISORDER
     Dosage: 1 TABLET DURING THE DAY AND 1 TABLET AT NIGHT
  4. LOSARTAN. [Concomitant]
     Active Substance: LOSARTAN
     Indication: HYPERTENSION
     Dosage: 50 MG, 1X/DAY
  5. RIVOTRIL [Concomitant]
     Active Substance: CLONAZEPAM
     Indication: NERVOUSNESS
  6. METFORMIN [Concomitant]
     Active Substance: METFORMIN HYDROCHLORIDE
     Indication: BLOOD GLUCOSE INCREASED
     Dosage: 850 MG, 2X/DAY
  7. ARADOIS [Concomitant]
     Active Substance: LOSARTAN POTASSIUM
     Dosage: UNK
  8. FRONTAL [Suspect]
     Active Substance: ALPRAZOLAM
     Indication: SLEEP DISORDER
     Dosage: 1 MG, 1 TABLET DURING THE DAY AND 1 TABLET AT NIGHT
     Route: 048
     Dates: start: 2015
  9. RIVOTRIL [Concomitant]
     Active Substance: CLONAZEPAM
     Indication: STRESS
  10. RISPERIDONE. [Suspect]
     Active Substance: RISPERIDONE
     Indication: SLEEP DISORDER
     Dosage: 0.5 MG, 1 TABLET DURING THE DAY AND 1 TABLET AT NIGHT
  11. ATENOLOL. [Concomitant]
     Active Substance: ATENOLOL
     Indication: HYPERTENSION
     Dosage: 50 MG, 1X/DAY

REACTIONS (7)
  - Drug ineffective [Not Recovered/Not Resolved]
  - Platelet count decreased [Recovered/Resolved]
  - Flavivirus infection [Not Recovered/Not Resolved]
  - Headache [Recovered/Resolved]
  - Chikungunya virus infection [Not Recovered/Not Resolved]
  - Musculoskeletal stiffness [Unknown]
  - Pain in extremity [Unknown]

NARRATIVE: CASE EVENT DATE: 201108
